FAERS Safety Report 9826995 (Version 1)
Quarter: 2014Q1

REPORT INFORMATION
  Report Type: Spontaneous
  Country: US (occurrence: None)
  Receive Date: 20140115
  Receipt Date: 20140115
  Transmission Date: 20141002
  Serious: Yes (Death, Other)
  Sender: FDA-Public Use
  Company Number: CC13-1367

PATIENT
  Age: 62 Year
  Sex: Male

DRUGS (4)
  1. IMIQUIMOD [Suspect]
     Indication: NODULE
     Dosage: 3 TIMES, WEEKLY
  2. IMIQUIMOD [Suspect]
     Indication: METASTASIS
     Dosage: 3 TIMES, WEEKLY
  3. SORAFENIB [Concomitant]
  4. ORAL MULTI-TARGETED TYROSINE KINASE INHIBITOR SUNITINIB [Concomitant]

REACTIONS (4)
  - Metastases to large intestine [None]
  - Cerebellar haemorrhage [None]
  - Metastases to central nervous system [None]
  - Metastases to muscle [None]
